FAERS Safety Report 6437521-6 (Version None)
Quarter: 2009Q4

REPORT INFORMATION
  Report Type: 
  Country: None (occurrence: None)
  Receive Date: 20091112
  Receipt Date: 20091109
  Transmission Date: 20100525
  Serious: Yes (Death)
  Sender: FDA-Public Use
  Company Number: DE-ASTRAZENECA-2009SE12031

PATIENT
  Age: 39 Year
  Sex: Male

DRUGS (6)
  1. SEROQUEL [Suspect]
     Route: 048
  2. SEROQUEL [Suspect]
     Route: 048
  3. LAMOTRIGINE [Concomitant]
  4. INSULIN [Concomitant]
  5. ZYPREXA [Concomitant]
     Dates: start: 20070101
  6. PALIPERIDONE [Concomitant]

REACTIONS (1)
  - CONVULSION [None]
